FAERS Safety Report 10174720 (Version 5)
Quarter: 2018Q1

REPORT INFORMATION
  Report Type: Report from Study
  Country: DE (occurrence: DE)
  Receive Date: 20140515
  Receipt Date: 20180329
  Transmission Date: 20180508
  Serious: Yes (Hospitalization, Other)
  Sender: FDA-Public Use
  Company Number: DE-PFIZER INC-2014129248

PATIENT
  Age: 69 Year
  Sex: Female
  Weight: 67.6 kg

DRUGS (14)
  1. AROMASIN [Suspect]
     Active Substance: EXEMESTANE
     Dosage: 25 MG, DAILY
     Route: 048
     Dates: start: 20140507, end: 20140531
  2. DORZOLAMID AL COMP [Concomitant]
     Dosage: 1 DF, UNK
     Route: 047
     Dates: start: 20120415
  3. AFINITOR [Suspect]
     Active Substance: EVEROLIMUS
     Indication: BREAST CANCER METASTATIC
     Dosage: 10 MG, DAILY
     Route: 048
     Dates: start: 20140408, end: 20140504
  4. AROMASIN [Suspect]
     Active Substance: EXEMESTANE
     Indication: BREAST CANCER METASTATIC
     Dosage: 25 MG, DAILY
     Route: 048
     Dates: start: 20140408, end: 20140505
  5. LETROZOLE. [Concomitant]
     Active Substance: LETROZOLE
     Dosage: UNK
     Dates: start: 20131217
  6. ANASTROZOLE. [Concomitant]
     Active Substance: ANASTROZOLE
     Dosage: UNK
     Dates: start: 20131209, end: 20140405
  7. LUMIGAN [Concomitant]
     Active Substance: BIMATOPROST
     Dosage: 0.3 MG, 1X/DAY
     Route: 047
     Dates: start: 20120415
  8. KALINOR RETARD [Concomitant]
     Active Substance: POTASSIUM CHLORIDE
     Dosage: 1 DF, 1X/DAY
     Dates: start: 20130227
  9. ASPIRIN. [Concomitant]
     Active Substance: ASPIRIN
     Dosage: 100 MG, 1X/DAY
     Route: 048
     Dates: start: 20000115
  10. RAMIPRIL BETA COMP [Concomitant]
     Indication: HYPERTENSION
     Dosage: 1 DF (5-25 MG), 1X/DAY
     Route: 048
     Dates: start: 20000115
  11. LETROZOLE. [Concomitant]
     Active Substance: LETROZOLE
     Dosage: UNK
     Dates: start: 20131209, end: 20140405
  12. SIMVASTATIN. [Concomitant]
     Active Substance: SIMVASTATIN
     Dosage: 10 MG, 1X/DAY
     Route: 048
     Dates: start: 20010115
  13. AFINITOR [Suspect]
     Active Substance: EVEROLIMUS
     Dosage: 10 MG, DAILY
     Route: 048
     Dates: start: 20140507, end: 20140531
  14. ANASTROZOLE. [Concomitant]
     Active Substance: ANASTROZOLE
     Dosage: UNK
     Dates: start: 20131217

REACTIONS (6)
  - Mucosal dryness [Unknown]
  - Nausea [Not Recovered/Not Resolved]
  - Hypokalaemia [Recovering/Resolving]
  - Epistaxis [Unknown]
  - Stomatitis [Recovered/Resolved]
  - Stomatitis [Unknown]

NARRATIVE: CASE EVENT DATE: 20140410
